FAERS Safety Report 5283503-X (Version None)
Quarter: 2007Q2

REPORT INFORMATION
  Report Type: 
  Country: None (occurrence: None)
  Receive Date: 20070402
  Receipt Date: 20070326
  Transmission Date: 20071010
  Serious: Yes (Other)
  Sender: FDA-Public Use
  Company Number: US-PURDUE-USA_2003_0012302

PATIENT
  Sex: Male

DRUGS (2)
  1. OXYCONTIN [Suspect]
     Indication: PAIN
     Dosage: UNK, UNK
  2. MORPHINE SULFATE [Suspect]
     Indication: PAIN
     Dosage: UNK, UNK

REACTIONS (8)
  - AGITATION [None]
  - CRYING [None]
  - DEPRESSION [None]
  - DRUG INEFFECTIVE [None]
  - DYSKINESIA [None]
  - INCOHERENT [None]
  - INSOMNIA [None]
  - RENAL IMPAIRMENT [None]
